FAERS Safety Report 12195454 (Version 1)
Quarter: 2016Q1

REPORT INFORMATION
  Report Type: Spontaneous
  Country: CA (occurrence: CA)
  Receive Date: 20160321
  Receipt Date: 20160321
  Transmission Date: 20160526
  Serious: Yes (Other)
  Sender: FDA-Public Use
  Company Number: CA-PFIZER INC-2016118602

PATIENT
  Age: 17 Year
  Sex: Female

DRUGS (1)
  1. ZELDOX [Suspect]
     Active Substance: ZIPRASIDONE
     Indication: SCHIZOPHRENIA
     Dosage: UNK
     Route: 048
     Dates: start: 201510

REACTIONS (5)
  - Lichen planus [Unknown]
  - Malignant melanoma [Unknown]
  - Pruritus [Unknown]
  - Skin lesion [Unknown]
  - Rash [Unknown]

NARRATIVE: CASE EVENT DATE: 20160219
